FAERS Safety Report 16880924 (Version 3)
Quarter: 2020Q3

REPORT INFORMATION
  Report Type: Report from Study
  Country: KR (occurrence: US)
  Receive Date: 20191003
  Receipt Date: 20191126
  Transmission Date: 20201104
  Serious: Yes (Death, Other)
  Sender: FDA-Public Use
  Company Number: KR-PFIZER INC-2017172758

PATIENT

DRUGS (5)
  1. TALAZOPARIB. [Suspect]
     Active Substance: TALAZOPARIB
     Indication: NEOPLASM
     Dosage: UNK UNK, CYCLIC, (100?1000MCG) DOSED ONCE DAILY FOR DAYS 1?3
     Route: 048
  2. PACLITAXEL. [Suspect]
     Active Substance: PACLITAXEL
     Indication: NEOPLASM
     Dosage: UNK UNK, CYCLIC , (80 MG/M) ( CYCLIC (ON DAYS 1, 8, AND 15 OF A 21?DAY))
  3. CARBOPLATIN. [Suspect]
     Active Substance: CARBOPLATIN
     Indication: NEOPLASM
     Dosage: UNK UNK, CYCLIC , (AUC 6) DAY 1
  4. TALAZOPARIB. [Suspect]
     Active Substance: TALAZOPARIB
     Dosage: 250 UG, CYCLIC
     Route: 048
  5. TALAZOPARIB. [Suspect]
     Active Substance: TALAZOPARIB
     Dosage: 350 UG, CYCLIC
     Route: 048

REACTIONS (1)
  - Haemorrhage intracranial [Fatal]
